FAERS Safety Report 19912034 (Version 2)
Quarter: 2022Q1

REPORT INFORMATION
  Report Type: Other
  Country: US (occurrence: None)
  Receive Date: 20211004
  Receipt Date: 20220119
  Transmission Date: 20220424
  Serious: Yes (Hospitalization)
  Sender: FDA-Public Use
  Company Number: US-ROCHE-2921149

PATIENT
  Age: 38 Year
  Sex: Male
  Weight: 99.880 kg

DRUGS (4)
  1. OCREVUS [Suspect]
     Active Substance: OCRELIZUMAB
     Indication: Multiple sclerosis
     Route: 042
     Dates: start: 2018
  2. VITAMIN D3 [Concomitant]
     Active Substance: CHOLECALCIFEROL
     Route: 048
     Dates: start: 201809
  3. VITAMIN C [Concomitant]
     Active Substance: ASCORBIC ACID
     Route: 048
     Dates: start: 20210809
  4. COVID-19 VACCINE [Concomitant]
     Dates: start: 20210322, end: 20210412

REACTIONS (4)
  - COVID-19 [Not Recovered/Not Resolved]
  - Heart rate increased [Recovered/Resolved]
  - Blood pressure fluctuation [Unknown]
  - Immobile [Recovering/Resolving]

NARRATIVE: CASE EVENT DATE: 20210622
